FAERS Safety Report 7608019-4 (Version None)
Quarter: 2011Q3

REPORT INFORMATION
  Report Type: 
  Country: None (occurrence: None)
  Receive Date: 20110714
  Receipt Date: 20110706
  Transmission Date: 20111222
  Serious: Yes (Other)
  Sender: FDA-Public Use
  Company Number: DE-JNJFOC-20110604104

PATIENT
  Sex: Male
  Weight: 77 kg

DRUGS (10)
  1. DURAGESIC-100 [Suspect]
     Indication: BONE PAIN
     Route: 062
  2. DURAGESIC-100 [Suspect]
     Route: 062
     Dates: start: 20110608, end: 20110608
  3. ATACAND [Concomitant]
     Indication: HYPERTENSION
     Route: 065
     Dates: start: 20110608
  4. DURAGESIC-100 [Suspect]
     Route: 062
  5. CONCOR COR [Concomitant]
     Route: 065
  6. DURAGESIC-100 [Suspect]
     Route: 062
     Dates: start: 20110608, end: 20110608
  7. DURAGESIC-100 [Suspect]
     Indication: BACK PAIN
     Route: 062
  8. DURAGESIC-100 [Suspect]
     Route: 062
  9. TORSEMIDE [Concomitant]
     Route: 065
  10. LORAZEPAM [Concomitant]
     Route: 065

REACTIONS (6)
  - DRUG ADMINISTRATION ERROR [None]
  - HEADACHE [None]
  - TOXICITY TO VARIOUS AGENTS [None]
  - ACCIDENTAL OVERDOSE [None]
  - VOMITING [None]
  - HYPERTENSION [None]
